FAERS Safety Report 6753809-3 (Version None)
Quarter: 2010Q2

REPORT INFORMATION
  Report Type: 
  Country: None (occurrence: None)
  Receive Date: 20100603
  Receipt Date: 20100526
  Transmission Date: 20101027
  Serious: Yes (Hospitalization)
  Sender: FDA-Public Use
  Company Number: IT-BAYER-201026627GPV

PATIENT
  Age: 73 Year
  Sex: Male

DRUGS (2)
  1. CIPROXIN [Suspect]
     Indication: POSTOPERATIVE WOUND INFECTION
     Dosage: 1 TABLET
     Route: 048
     Dates: start: 20100223, end: 20100224
  2. NOVORAPID [Concomitant]
     Indication: DIABETES MELLITUS
     Route: 058

REACTIONS (1)
  - HYPOGLYCAEMIA [None]
